FAERS Safety Report 4883043-3 (Version None)
Quarter: 2006Q1

REPORT INFORMATION
  Report Type: 
  Country: None (occurrence: None)
  Receive Date: 20060118
  Receipt Date: 20060106
  Transmission Date: 20060701
  Serious: Yes (Hospitalization)
  Sender: FDA-Public Use
  Company Number: FR-JNJFOC-20051104833

PATIENT
  Age: 33 Year
  Sex: Male
  Weight: 110 kg

DRUGS (4)
  1. LEUSTATIN [Suspect]
     Dosage: 5TH CYCLE
     Route: 042
  2. MINIRIN [Concomitant]
  3. LEVOTHYROXINE SODIUM [Concomitant]
  4. HYDROCORTISONE [Concomitant]

REACTIONS (1)
  - RENAL TUBULAR DISORDER [None]
